FAERS Safety Report 18926416 (Version 2)
Quarter: 2021Q2

REPORT INFORMATION
  Report Type: Spontaneous
  Country: CH (occurrence: CH)
  Receive Date: 20210222
  Receipt Date: 20210421
  Transmission Date: 20210717
  Serious: Yes (Hospitalization)
  Sender: FDA-Public Use
  Company Number: CH-AMGEN-CHESP2021022277

PATIENT
  Age: 25 Year
  Sex: Female
  Weight: 67.1 kg

DRUGS (7)
  1. AZATHIOPRIN [Suspect]
     Active Substance: AZATHIOPRINE
     Indication: RENAL TRANSPLANT
     Dosage: 75 MILLIGRAM, 11X/DX/D
     Route: 065
     Dates: start: 20190226
  2. ADVAGRAF [Concomitant]
     Active Substance: TACROLIMUS
     Indication: RENAL TRANSPLANT
     Dosage: UNK
     Dates: start: 20170529
  3. CALCIUM + D3 [CALCIUM CARBONATE;COLECALCIFEROL] [Concomitant]
     Indication: RENAL TRANSPLANT
     Dosage: 1000 MILLIGRAM/800 IE/ 11X/DX/D
     Dates: start: 20201021
  4. ARANESP [Suspect]
     Active Substance: DARBEPOETIN ALFA
     Indication: NEPHROGENIC ANAEMIA
     Dosage: 130 MICROGRAM, QD
     Route: 058
     Dates: start: 20190625
  5. LABETALOL [Concomitant]
     Active Substance: LABETALOL\LABETALOL HYDROCHLORIDE
     Indication: HYPERTENSION
     Dosage: 100?400 MG, 3X/D
     Dates: start: 20190226
  6. PREDNISONE. [Concomitant]
     Active Substance: PREDNISONE
     Indication: RENAL TRANSPLANT
     Dosage: 5 MILLIGRAM, 11X/DX/D
     Dates: start: 2015
  7. ACETYLSALICYLIC ACID [Concomitant]
     Active Substance: ASPIRIN
     Indication: PROPHYLAXIS
     Dosage: 150 MILLIGRAM, QD
     Dates: start: 202011

REACTIONS (3)
  - Unevaluable event [Unknown]
  - Maternal exposure during pregnancy [Unknown]
  - Haemoglobin decreased [Unknown]

NARRATIVE: CASE EVENT DATE: 20201215
